FAERS Safety Report 6108982-7 (Version None)
Quarter: 2009Q1

REPORT INFORMATION
  Report Type: 
  Country: None (occurrence: None)
  Receive Date: 20090306
  Receipt Date: 20090225
  Transmission Date: 20090719
  Serious: Yes (Other)
  Sender: FDA-Public Use
  Company Number: GXKR2009GB02421

PATIENT
  Age: 90 Year
  Sex: Male

DRUGS (6)
  1. DOXYCYCLINE [Suspect]
     Indication: LOWER RESPIRATORY TRACT INFECTION
     Dosage: 100 MG, ORAL
     Route: 048
     Dates: start: 20090119, end: 20090126
  2. ACETYLSALICYLIC ACID SRT [Concomitant]
  3. ATROVENT (PRATROPIUM BROMIDE) [Concomitant]
  4. SALBUTAMOL (SALBUTAMOL) [Concomitant]
  5. FLUTICASONE PROPIONATE W/SALMETEROL XINAFOATE (FLUTICASONE PROPIONATE, [Concomitant]
  6. SIMVASTATIN [Concomitant]

REACTIONS (1)
  - LIVER FUNCTION TEST ABNORMAL [None]
